FAERS Safety Report 23753994 (Version 1)
Quarter: 2024Q2

REPORT INFORMATION
  Report Type: Spontaneous
  Country: JP (occurrence: JP)
  Receive Date: 20240417
  Receipt Date: 20240417
  Transmission Date: 20240715
  Serious: Yes (Life-Threatening, Hospitalization, Other)
  Sender: FDA-Public Use
  Company Number: JP-MSD-2404JPN001117J

PATIENT
  Age: 54 Year
  Sex: Male
  Weight: 60 kg

DRUGS (7)
  1. BRIDION [Suspect]
     Active Substance: SUGAMMADEX
     Indication: Neuromuscular blockade reversal
     Dosage: 200 MILLIGRAM
     Route: 051
  2. ROCURONIUM BROMIDE [Suspect]
     Active Substance: ROCURONIUM BROMIDE
     Indication: Induction of anaesthesia
     Dosage: 50 MILLIGRAM
     Route: 051
  3. PROPOFOL [Suspect]
     Active Substance: PROPOFOL
     Indication: Induction of anaesthesia
     Dosage: 100 MILLIGRAM
     Route: 065
  4. REMIFENTANIL HYDROCHLORIDE [Suspect]
     Active Substance: REMIFENTANIL HYDROCHLORIDE
     Indication: Induction and maintenance of anaesthesia
     Dosage: 0.3 ?G/KG/MIN
     Route: 065
  5. REMIFENTANIL HYDROCHLORIDE [Suspect]
     Active Substance: REMIFENTANIL HYDROCHLORIDE
     Dosage: 0.2-0.35 ?G/KG/MIN
     Route: 065
  6. DESFLURANE [Suspect]
     Active Substance: DESFLURANE
     Indication: Maintenance of anaesthesia
     Dosage: 4-5%
     Route: 065
  7. FENTANYL CITRATE [Suspect]
     Active Substance: FENTANYL CITRATE
     Indication: Postoperative analgesia
     Dosage: 30 ?G/H
     Route: 065

REACTIONS (1)
  - Cardiac arrest [Recovered/Resolved]
